FAERS Safety Report 21209132 (Version 1)
Quarter: 2022Q3

REPORT INFORMATION
  Report Type: Spontaneous
  Country: US (occurrence: None)
  Receive Date: 20220812
  Receipt Date: 20220812
  Transmission Date: 20221027
  Serious: No
  Sender: FDA-Public Use
  Company Number: 2022A237506

PATIENT
  Age: 29532 Day
  Sex: Female
  Weight: 58.1 kg

DRUGS (1)
  1. BYDUREON BCISE [Suspect]
     Active Substance: EXENATIDE
     Indication: Type 2 diabetes mellitus
     Route: 058
     Dates: start: 20220627

REACTIONS (4)
  - Injection site extravasation [Unknown]
  - Wrong technique in device usage process [Unknown]
  - Product storage error [Unknown]
  - Device use issue [Unknown]

NARRATIVE: CASE EVENT DATE: 20220627
